FAERS Safety Report 5313894-2 (Version None)
Quarter: 2007Q2

REPORT INFORMATION
  Report Type: 
  Country: None (occurrence: None)
  Receive Date: 20070501
  Receipt Date: 20070420
  Transmission Date: 20071010
  Serious: Yes (Other)
  Sender: FDA-Public Use
  Company Number: US-JNJFOC-20070404687

PATIENT
  Age: 54 Year
  Sex: Female
  Weight: 93.44 kg

DRUGS (3)
  1. TOPAMAX [Suspect]
     Route: 048
  2. TOPAMAX [Suspect]
     Indication: HEADACHE
     Route: 048
  3. PROZAC [Concomitant]
     Indication: DEPRESSION
     Route: 048

REACTIONS (7)
  - ASTHENIA [None]
  - CEREBROVASCULAR ACCIDENT [None]
  - FATIGUE [None]
  - INSOMNIA [None]
  - SOMNOLENCE [None]
  - THERAPEUTIC RESPONSE UNEXPECTED [None]
  - WEIGHT DECREASED [None]
